FAERS Safety Report 12802303 (Version 1)
Quarter: 2016Q4

REPORT INFORMATION
  Report Type: Spontaneous
  Country: US (occurrence: US)
  Receive Date: 20161003
  Receipt Date: 20161003
  Transmission Date: 20170207
  Serious: No
  Sender: FDA-Public Use
  Company Number: US-JAZZ-2016-US-012416

PATIENT
  Age: 35 Year
  Sex: Male

DRUGS (16)
  1. XYREM [Suspect]
     Active Substance: SODIUM OXYBATE
     Indication: NARCOLEPSY
     Dosage: 2.25 G, BID
     Route: 048
     Dates: start: 201606
  2. INVOKANA [Concomitant]
     Active Substance: CANAGLIFLOZIN
  3. NOVOLOG [Concomitant]
     Active Substance: INSULIN ASPART
  4. MERCAPTOPURINE. [Concomitant]
     Active Substance: MERCAPTOPURINE
  5. REMICADE [Concomitant]
     Active Substance: INFLIXIMAB
  6. XYREM [Suspect]
     Active Substance: SODIUM OXYBATE
     Indication: CATAPLEXY
  7. LISINOPRIL. [Concomitant]
     Active Substance: LISINOPRIL
  8. AMLODIPINE BESYLATE. [Concomitant]
     Active Substance: AMLODIPINE BESYLATE
  9. LOMOTIL [Concomitant]
     Active Substance: ATROPINE SULFATE\DIPHENOXYLATE HYDROCHLORIDE
  10. HUMALOG [Concomitant]
     Active Substance: INSULIN LISPRO
  11. GLUCAGON. [Concomitant]
     Active Substance: GLUCAGON
  12. LANTUS [Concomitant]
     Active Substance: INSULIN GLARGINE
  13. FOLIC ACID. [Concomitant]
     Active Substance: FOLIC ACID
  14. ATORVASTATIN [Concomitant]
     Active Substance: ATORVASTATIN
  15. ADDERALL [Concomitant]
     Active Substance: AMPHETAMINE ASPARTATE\AMPHETAMINE SULFATE\DEXTROAMPHETAMINE SACCHARATE\DEXTROAMPHETAMINE SULFATE
  16. LIALDA DR [Concomitant]

REACTIONS (1)
  - Terminal insomnia [Unknown]

NARRATIVE: CASE EVENT DATE: 201606
